FAERS Safety Report 8383407-X (Version None)
Quarter: 2012Q2

REPORT INFORMATION
  Report Type: 
  Country: None (occurrence: None)
  Receive Date: 20120524
  Receipt Date: 20120521
  Transmission Date: 20120825
  Serious: No
  Sender: FDA-Public Use
  Company Number: US-PFIZER INC-2012123325

PATIENT
  Age: 85 Year
  Sex: Female

DRUGS (3)
  1. AMITRIPTYLINE HCL [Suspect]
     Dosage: 25 MG, UNK
  2. PROCARDIA XL [Suspect]
     Indication: HYPERTENSION
     Dosage: UNK
  3. LOPRESSOR HCT [Suspect]
     Indication: HYPERTENSION
     Dosage: 50 MG/NOT SPECIFIED

REACTIONS (1)
  - SKIN REACTION [None]
